FAERS Safety Report 16928541 (Version 3)
Quarter: 2019Q4

REPORT INFORMATION
  Report Type: Spontaneous
  Country: CA (occurrence: CA)
  Receive Date: 20191017
  Receipt Date: 20191128
  Transmission Date: 20200122
  Serious: Yes (Other)
  Sender: FDA-Public Use
  Company Number: CA-ORION CORPORATION ORION PHARMA-TREX2019-3350

PATIENT
  Age: 77 Year
  Sex: Female

DRUGS (17)
  1. SHINGRIX [Concomitant]
     Active Substance: RECOMBINANT VARICELLA ZOSTER VIRUS (VZV) GLYCOPROTEIN E
     Route: 065
     Dates: start: 20190927
  2. FOLIC ACID. [Concomitant]
     Active Substance: FOLIC ACID
     Indication: RHEUMATOID ARTHRITIS
     Route: 065
  3. VITAMIN C [Concomitant]
     Active Substance: ASCORBIC ACID
     Route: 065
  4. BETADERM [Concomitant]
     Active Substance: BETAMETHASONE VALERATE
     Indication: HYPERSENSITIVITY
     Dosage: STRENGTH: 0.5%
     Route: 065
  5. PLAQUENIL [Concomitant]
     Active Substance: HYDROXYCHLOROQUINE SULFATE
     Indication: RHEUMATOID ARTHRITIS
     Route: 065
  6. OLMETEC VITAMIN C [Concomitant]
     Route: 065
  7. HYDRALAZINE [Concomitant]
     Active Substance: HYDRALAZINE HYDROCHLORIDE
     Route: 065
  8. CALCIUM/VITAMIN D 2000 [Concomitant]
     Route: 065
  9. PROLIA [Concomitant]
     Active Substance: DENOSUMAB
     Route: 065
  10. METHOTREXATE (TRADE NAME UNKNOWN) [Suspect]
     Active Substance: METHOTREXATE
     Indication: RHEUMATOID ARTHRITIS
     Dosage: (2.5 MG, 8 PILLS ONCE A WEEK)
     Route: 048
  11. AMLODIPINE [Concomitant]
     Active Substance: AMLODIPINE BESYLATE
     Indication: HYPERTENSION
     Route: 065
  12. RABEPRAZOLE [Concomitant]
     Active Substance: RABEPRAZOLE
     Dosage: BEING ALLERGIC TO BACTRIM AND SEPTRA PATIENT ALSO TAKES RABEPRAZOLE
     Route: 065
  13. VITAMIN B12 [Concomitant]
     Active Substance: CYANOCOBALAMIN
     Route: 065
  14. BISOPROLOL [Concomitant]
     Active Substance: BISOPROLOL
     Route: 065
  15. ASPIRIN. [Concomitant]
     Active Substance: ASPIRIN
     Dosage: ALTERNATE DAY
     Route: 065
  16. TRIAMCINOLONE [Concomitant]
     Active Substance: TRIAMCINOLONE
     Indication: HYPERSENSITIVITY
     Dosage: ONCE IN 5 TO 6 MONTHS
     Route: 065
  17. RUPALL [Concomitant]
     Active Substance: RUPATADINE FUMARATE
     Indication: HYPERSENSITIVITY
     Route: 065

REACTIONS (6)
  - Joint swelling [Unknown]
  - Tuberculin test positive [Unknown]
  - Stress [Unknown]
  - Peripheral swelling [Unknown]
  - Therapeutic product effect incomplete [Unknown]
  - Pneumonia [Recovering/Resolving]
